FAERS Safety Report 9798204 (Version 2)
Quarter: 2014Q2

REPORT INFORMATION
  Report Type: Spontaneous
  Country: US (occurrence: US)
  Receive Date: 20140106
  Receipt Date: 20140402
  Transmission Date: 20141212
  Serious: Yes (Congenital Anomaly, Other)
  Sender: FDA-Public Use
  Company Number: US-PFIZER INC-2014000882

PATIENT
  Sex: Male

DRUGS (10)
  1. ZOLOFT [Suspect]
     Indication: ANXIETY
     Dosage: UNK
     Route: 064
     Dates: start: 200305, end: 200306
  2. ZOLOFT [Suspect]
     Indication: DEPRESSION
  3. ZOLOFT [Suspect]
     Indication: AFFECTIVE DISORDER
  4. PRENATE GT [Concomitant]
     Dosage: UNK
     Route: 064
  5. PHENTERMINE [Concomitant]
     Dosage: UNK
     Route: 064
  6. IBUPROFEN [Concomitant]
     Dosage: UNK
     Route: 064
  7. CEPHALEXIN [Concomitant]
     Dosage: UNK
     Route: 064
  8. HYDROCODONE/ACETAMINOPHEN [Concomitant]
     Dosage: UNK
     Route: 064
  9. AMOX/K CLAV [Concomitant]
     Dosage: UNK
     Route: 064
  10. SUDAL SR [Concomitant]
     Dosage: UNK
     Route: 064

REACTIONS (5)
  - Maternal exposure during pregnancy [Unknown]
  - Spina bifida [Unknown]
  - Neurogenic bladder [Unknown]
  - Skull malformation [Unknown]
  - Scoliosis [Unknown]
